FAERS Safety Report 10877175 (Version 2)
Quarter: 2015Q1

REPORT INFORMATION
  Report Type: Spontaneous
  Country: GB (occurrence: GB)
  Receive Date: 20150302
  Receipt Date: 20150302
  Transmission Date: 20150721
  Serious: Yes (Other)
  Sender: FDA-Public Use
  Company Number: GB-JNJFOC-20150215925

PATIENT
  Age: 32 Year
  Sex: Female
  Weight: 101.6 kg

DRUGS (2)
  1. XARELTO [Suspect]
     Active Substance: RIVAROXABAN
     Indication: EMBOLISM VENOUS
     Route: 048
     Dates: start: 20150103, end: 20150128
  2. XARELTO [Suspect]
     Active Substance: RIVAROXABAN
     Indication: DEEP VEIN THROMBOSIS
     Route: 048
     Dates: start: 20150103, end: 20150128

REACTIONS (4)
  - Dissociation [Unknown]
  - Memory impairment [Unknown]
  - Somnolence [Recovering/Resolving]
  - Eczema [Recovering/Resolving]
